FAERS Safety Report 7898279-7 (Version None)
Quarter: 2011Q4

REPORT INFORMATION
  Report Type: 
  Country: None (occurrence: None)
  Receive Date: 20111107
  Receipt Date: 20111026
  Transmission Date: 20120403
  Serious: Yes (Other)
  Sender: FDA-Public Use
  Company Number: GB-GLAXOSMITHKLINE-B0760286A

PATIENT
  Sex: Female
  Weight: 68.6 kg

DRUGS (6)
  1. PROPAFENONE HCL [Suspect]
     Indication: ATRIAL FIBRILLATION
     Dosage: 150MG THREE TIMES PER DAY
     Route: 048
     Dates: start: 20110804
  2. ASPIRIN [Concomitant]
     Dosage: 75MG PER DAY
     Route: 048
  3. FLECAINIDE ACETATE [Concomitant]
     Dosage: 100MG TWICE PER DAY
     Route: 048
     Dates: start: 20110711, end: 20110804
  4. BETA-CARDONE [Concomitant]
     Dosage: 40MG TWICE PER DAY
     Dates: start: 20110616, end: 20110711
  5. PROPAFENONE HCL [Suspect]
     Indication: ATRIAL TACHYCARDIA
     Dosage: 300MG THREE TIMES PER DAY
     Route: 048
  6. SOTALOL HCL [Concomitant]
     Indication: PALPITATIONS

REACTIONS (5)
  - DIZZINESS [None]
  - CONSTIPATION [None]
  - VISION BLURRED [None]
  - HEART RATE IRREGULAR [None]
  - MUSCULAR WEAKNESS [None]
